FAERS Safety Report 22364529 (Version 1)
Quarter: 2023Q2

REPORT INFORMATION
  Report Type: Spontaneous
  Country: MY (occurrence: MY)
  Receive Date: 20230525
  Receipt Date: 20230525
  Transmission Date: 20230721
  Serious: Yes (Other)
  Sender: FDA-Public Use
  Company Number: MY-BoehringerIngelheim-2023-BI-228075

PATIENT
  Age: 65 Year
  Sex: Male
  Weight: 61 kg

DRUGS (2)
  1. METALYSE [Suspect]
     Active Substance: TENECTEPLASE
     Indication: Myocardial infarction
     Dosage: 6500 UNITS
     Route: 040
     Dates: start: 20230313, end: 20230313
  2. HEPARIN [Concomitant]
     Active Substance: HEPARIN SODIUM
     Indication: Product used for unknown indication

REACTIONS (3)
  - Treatment failure [Unknown]
  - Drug ineffective [Unknown]
  - No adverse event [Unknown]

NARRATIVE: CASE EVENT DATE: 20230313
